FAERS Safety Report 17169295 (Version 1)
Quarter: 2019Q4

REPORT INFORMATION
  Report Type: Spontaneous
  Country: KR (occurrence: KR)
  Receive Date: 20191218
  Receipt Date: 20191218
  Transmission Date: 20200122
  Serious: Yes (Death)
  Sender: FDA-Public Use
  Company Number: KR-FERRINGPH-2019FE08253

PATIENT
  Sex: Female

DRUGS (1)
  1. PROPESS [Suspect]
     Active Substance: DINOPROSTONE
     Indication: LABOUR INDUCTION
     Route: 065

REACTIONS (2)
  - Contraindicated product administered [Unknown]
  - Death [Fatal]
